FAERS Safety Report 6262073-3 (Version None)
Quarter: 2009Q3

REPORT INFORMATION
  Report Type: 
  Country: None (occurrence: None)
  Receive Date: 20090707
  Receipt Date: 20090707
  Transmission Date: 20100115
  Serious: No
  Sender: FDA-Public Use
  Company Number: None

PATIENT
  Sex: Female
  Weight: 63.5036 kg

DRUGS (1)
  1. LEXISCAN [Suspect]
     Indication: CHEST PAIN
     Dosage: ? ONE-TIME FOR TEST IV
     Route: 042
     Dates: start: 20090612, end: 20090612

REACTIONS (4)
  - MIGRAINE [None]
  - NAUSEA [None]
  - NEURALGIA [None]
  - VOMITING [None]
